FAERS Safety Report 9580285 (Version 1)
Quarter: 2013Q3

REPORT INFORMATION
  Report Type: Spontaneous
  Country: US (occurrence: None)
  Receive Date: 20130916
  Receipt Date: 20130916
  Transmission Date: 20140515
  Serious: Yes (Other)
  Sender: FDA-Public Use
  Company Number: JPI-P-029603

PATIENT
  Age: 41 Year
  Sex: Female

DRUGS (6)
  1. XYREM [Suspect]
     Indication: NARCOLEPSY
     Dosage: 4.5 GM  (2.25 GM,  2 IN 1 D),  ORAL
     Route: 048
     Dates: start: 20130113
  2. TOPIRAMATE [Concomitant]
  3. METHYLPHENIDATE HYDROCHLORIDE [Concomitant]
  4. OMEPRAZOLE [Concomitant]
  5. ACETAMINOPHEN; HYDROCODONE BITARTRATE [Concomitant]
  6. ASPIRIN [Concomitant]

REACTIONS (3)
  - Blood pressure increased [None]
  - Headache [None]
  - Condition aggravated [None]
